FAERS Safety Report 7385803-6 (Version None)
Quarter: 2011Q1

REPORT INFORMATION
  Report Type: 
  Country: None (occurrence: None)
  Receive Date: 20110331
  Receipt Date: 20110303
  Transmission Date: 20110831
  Serious: Yes (Other)
  Sender: FDA-Public Use
  Company Number: US-BAYER-201040774NA

PATIENT
  Sex: Female
  Weight: 63.492 kg

DRUGS (3)
  1. YASMIN [Suspect]
     Indication: CONTRACEPTION
     Dosage: UNK
     Dates: start: 20011201
  2. ADVIL [IBUPROFEN] [Concomitant]
  3. ANTIBIOTICS [Concomitant]
     Indication: INFECTION

REACTIONS (1)
  - GALLBLADDER DISORDER [None]
